FAERS Safety Report 14802755 (Version 2)
Quarter: 2018Q2

REPORT INFORMATION
  Report Type: Report from Study
  Country: FR (occurrence: FR)
  Receive Date: 20180424
  Receipt Date: 20180606
  Transmission Date: 20180711
  Serious: Yes (Other)
  Sender: FDA-Public Use
  Company Number: FR-PFIZER INC-2018163959

PATIENT
  Age: 65 Year
  Sex: Male
  Weight: 74 kg

DRUGS (11)
  1. AFLIBERCEPT [Suspect]
     Active Substance: AFLIBERCEPT
     Dosage: 296 MG, CYCLIC
     Route: 041
     Dates: start: 20150521, end: 20150521
  2. PERINDOPRIL [Concomitant]
     Active Substance: PERINDOPRIL
     Dosage: UNK
     Route: 065
     Dates: start: 20150521
  3. IRINOTECAN HCL [Suspect]
     Active Substance: IRINOTECAN HYDROCHLORIDE
     Indication: COLORECTAL CANCER METASTATIC
     Dosage: 340 MG, CYCLIC
     Route: 041
     Dates: start: 20150323, end: 20150323
  4. FLUOROURACIL. [Suspect]
     Active Substance: FLUOROURACIL
     Dosage: 4541 MG, CYCLIC
     Route: 041
     Dates: start: 20150521
  5. FLUOROURACIL. [Suspect]
     Active Substance: FLUOROURACIL
     Indication: COLORECTAL CANCER METASTATIC
     Dosage: 756 MG, CYCLIC
     Route: 040
     Dates: start: 20150323, end: 20150323
  6. FLUOROURACIL. [Suspect]
     Active Substance: FLUOROURACIL
     Dosage: 756 MG, CYCLIC
     Route: 040
     Dates: start: 20150521, end: 20150521
  7. LEUCOVORIN. [Suspect]
     Active Substance: LEUCOVORIN
     Indication: COLORECTAL CANCER METASTATIC
     Dosage: 756 MG, CYCLIC
     Route: 041
     Dates: start: 20150323, end: 20150323
  8. AFLIBERCEPT [Suspect]
     Active Substance: AFLIBERCEPT
     Indication: COLORECTAL CANCER METASTATIC
     Dosage: 295 MG, CYCLIC
     Route: 041
     Dates: start: 20150323, end: 20150323
  9. IRINOTECAN HCL [Suspect]
     Active Substance: IRINOTECAN HYDROCHLORIDE
     Dosage: 340 MG, CYCLIC
     Route: 041
     Dates: start: 20150521, end: 20150521
  10. FLUOROURACIL. [Suspect]
     Active Substance: FLUOROURACIL
     Dosage: 4541 MG, CYCLIC
     Route: 041
     Dates: start: 20150323
  11. LEUCOVORIN. [Suspect]
     Active Substance: LEUCOVORIN
     Dosage: 756 MG, CYCLIC
     Route: 041
     Dates: start: 20150521, end: 20150521

REACTIONS (2)
  - Proteinuria [Recovered/Resolved]
  - Hypertension [Not Recovered/Not Resolved]

NARRATIVE: CASE EVENT DATE: 20150521
